FAERS Safety Report 25368286 (Version 1)
Quarter: 2025Q2

REPORT INFORMATION
  Report Type: Spontaneous
  Country: CN (occurrence: CN)
  Receive Date: 20250528
  Receipt Date: 20250528
  Transmission Date: 20250717
  Serious: Yes (Other)
  Sender: NOVARTIS
  Company Number: CN-002147023-NVSC2025CN084998

PATIENT
  Age: 77 Year
  Sex: Female

DRUGS (2)
  1. GLIVEC [Suspect]
     Active Substance: IMATINIB MESYLATE
     Indication: Chronic myeloid leukaemia
     Route: 048
     Dates: start: 20181203
  2. GLIVEC [Suspect]
     Active Substance: IMATINIB MESYLATE
     Route: 048

REACTIONS (2)
  - Renal impairment [Unknown]
  - Drug intolerance [Unknown]
